FAERS Safety Report 12440177 (Version 1)
Quarter: 2016Q2

REPORT INFORMATION
  Report Type: Report from Study
  Country: US (occurrence: US)
  Receive Date: 20160606
  Receipt Date: 20160606
  Transmission Date: 20160815
  Serious: No
  Sender: FDA-Public Use
  Company Number: US-AMGEN-USASL2015104221

PATIENT
  Age: 80 Year
  Sex: Female
  Weight: 83.64 kg

DRUGS (17)
  1. CALCIUM CARBONATE. [Concomitant]
     Active Substance: CALCIUM CARBONATE
     Dosage: 500 MG, DAILY
     Route: 048
     Dates: start: 20150723
  2. BRIMONIDINE [Concomitant]
     Active Substance: BRIMONIDINE TARTRATE
     Dosage: 0.2 %, 1 DROP TO RT EYE BID
  3. DORZOLAMIDE [Concomitant]
     Active Substance: DORZOLAMIDE
     Dosage: 2 %, INSTILL 1 DROP BID
     Route: 047
  4. LEVOTHYROXINE. [Concomitant]
     Active Substance: LEVOTHYROXINE
     Dosage: 100 MCG, TAKE 1 TABLET EVERY DAY
     Route: 048
     Dates: start: 20150723
  5. METOPROLOL SUCCINATE. [Concomitant]
     Active Substance: METOPROLOL SUCCINATE
     Dosage: 25 MG, EVERY DAY
     Route: 048
     Dates: start: 20150723, end: 20150910
  6. MECLIZINE [Concomitant]
     Active Substance: MECLIZINE HYDROCHLORIDE
     Indication: DIZZINESS
     Dosage: 12.5 MG, TID PRN
     Dates: start: 20150723
  7. ALBUTEROL SULFATE. [Concomitant]
     Active Substance: ALBUTEROL SULFATE
     Dosage: 2.5MG/3ML, Q8HRS
     Dates: start: 20150723
  8. IPRATROPIUM BROMIDE. [Concomitant]
     Active Substance: IPRATROPIUM BROMIDE
     Dosage: 5 MG, PRN
     Dates: start: 20150723
  9. NITROSTAT [Concomitant]
     Active Substance: NITROGLYCERIN
     Dosage: 0.4 MG, UNK
     Route: 060
     Dates: start: 20150723
  10. LACTULOSE. [Concomitant]
     Active Substance: LACTULOSE
     Dosage: 10 G/15 ML ORAL SOLUTION
     Route: 048
     Dates: start: 20150723
  11. FOLIC ACID. [Concomitant]
     Active Substance: FOLIC ACID
     Dosage: 1 MG, 2 TABS DAILY
     Dates: start: 20150723
  12. VITAMIN D3 [Concomitant]
     Active Substance: CHOLECALCIFEROL
     Dosage: 2000 UNIT, EVERY DAY
     Route: 048
     Dates: start: 20150723
  13. PRAVASTATIN [Concomitant]
     Active Substance: PRAVASTATIN\PRAVASTATIN SODIUM
     Dosage: 20 MG, TAKE 1 TABLET EVERY DAY
     Route: 048
     Dates: start: 20150723
  14. FERROUS SULFATE. [Concomitant]
     Active Substance: FERROUS SULFATE
     Dosage: 325 MG, ONE TAB DAILY
     Dates: start: 20150723
  15. PROCRIT [Suspect]
     Active Substance: ERYTHROPOIETIN
     Indication: PRODUCT USED FOR UNKNOWN INDICATION
     Dosage: 4,000 UNIT, EVERY WEEK
     Route: 058
     Dates: start: 20150612
  16. FUROSEMIDE. [Concomitant]
     Active Substance: FUROSEMIDE
     Dosage: 40 MG, EVERY DAY
     Route: 048
     Dates: start: 20150723
  17. AMIODARONE [Concomitant]
     Active Substance: AMIODARONE
     Dosage: 200 MG, EVERY DAY
     Route: 048
     Dates: start: 20150723, end: 20150910

REACTIONS (3)
  - Contusion [Unknown]
  - Anaemia [Unknown]
  - Dyspnoea [Unknown]
